FAERS Safety Report 5445762-X (Version None)
Quarter: 2007Q3

REPORT INFORMATION
  Report Type: 
  Country: None (occurrence: None)
  Receive Date: 20070904
  Receipt Date: 20070820
  Transmission Date: 20080115
  Serious: Yes (Hospitalization, Other)
  Sender: FDA-Public Use
  Company Number: CHNY2007CH02925

PATIENT
  Age: 79 Year
  Sex: Female

DRUGS (1)
  1. PURSENNID (NCH)(SENNA GLYCOSIDES (CA SALTS OF PURIFIED SENNA EXTRACT)) [Suspect]
     Indication: CONSTIPATION
     Dosage: PRN, ORAL
     Route: 048
     Dates: end: 20061217

REACTIONS (8)
  - DEHYDRATION [None]
  - DIARRHOEA [None]
  - DRUG ABUSE [None]
  - INFLAMMATION [None]
  - MALAISE [None]
  - MUCOSAL DRYNESS [None]
  - RENAL FAILURE CHRONIC [None]
  - SYNCOPE [None]
